FAERS Safety Report 26056353 (Version 1)
Quarter: 2025Q4

REPORT INFORMATION
  Report Type: Report from Study
  Country: CA (occurrence: CA)
  Receive Date: 20251118
  Receipt Date: 20251118
  Transmission Date: 20260117
  Serious: Yes (Death, Other)
  Sender: GLAXOSMITHKLINE
  Company Number: CA-GSK-CA2025081785

PATIENT
  Age: 82 Year
  Sex: Female
  Weight: 49.887 kg

DRUGS (2)
  1. MOMELOTINIB [Suspect]
     Active Substance: MOMELOTINIB
     Indication: Myelofibrosis
     Dosage: 200 MG, QD
  2. MOMELOTINIB [Suspect]
     Active Substance: MOMELOTINIB
     Dosage: 100 MG, QD

REACTIONS (17)
  - Leukaemia [Fatal]
  - Dysphagia [Unknown]
  - Dizziness [Unknown]
  - Blood pressure diastolic decreased [Unknown]
  - Arthritis [Unknown]
  - Vision blurred [Unknown]
  - Osteoarthritis [Unknown]
  - Anaemia [Unknown]
  - Taste disorder [Unknown]
  - Gait disturbance [Unknown]
  - Bone pain [Unknown]
  - Red blood cell count increased [Unknown]
  - Constipation [Unknown]
  - Fatigue [Unknown]
  - Pain [Unknown]
  - Influenza like illness [Unknown]
  - Red blood cell count decreased [Unknown]

NARRATIVE: CASE EVENT DATE: 20250627
